FAERS Safety Report 22056227 (Version 2)
Quarter: 2023Q1

REPORT INFORMATION
  Report Type: Report from Study
  Country: DK (occurrence: DK)
  Receive Date: 20230302
  Receipt Date: 20230322
  Transmission Date: 20230417
  Serious: Yes (Hospitalization)
  Sender: FDA-Public Use
  Company Number: DK-KARYOPHARM-2023KPT000863

PATIENT
  Age: 82 Year
  Sex: Male
  Weight: 69.2 kg

DRUGS (12)
  1. SELINEXOR [Suspect]
     Active Substance: SELINEXOR
     Indication: Plasma cell myeloma
     Dosage: 40 MG, WEEKLY ON DAY 1, 8, 15, AND 22 OF EACH 28-DAY CYCLE
     Route: 048
     Dates: start: 20221013, end: 20230202
  2. SELINEXOR [Suspect]
     Active Substance: SELINEXOR
     Dosage: 40 MG, WEEKLY EVERY THURSDAY MORNING (40 MG)
     Route: 048
     Dates: start: 20230119
  3. VITAMINS [Concomitant]
     Active Substance: VITAMINS
     Indication: Vitamin supplementation
     Dosage: 1 TABLET IN THE MORNING
     Dates: start: 20221220
  4. UNIKALK SILVER [Concomitant]
     Indication: Bone disorder
     Dosage: 1 TABLET IN THE MORNING AND 1 TABLET IN THE EVENING
     Dates: start: 20221013
  5. POTASSIUM CHLORIDE [Concomitant]
     Active Substance: POTASSIUM CHLORIDE
     Indication: Blood potassium decreased
     Dosage: 1 TABLET IN THE MORNING (1 IN 1 D)
     Dates: start: 20221227
  6. MABLET [Concomitant]
     Indication: Magnesium deficiency
     Dosage: 360 MG AT 08.00 A.M., 360 MG AT 12.00 P.M, 360 MG AT 06.00 P.M. (3 IN 1 D)
     Dates: start: 20221220
  7. FRAGMIN [Concomitant]
     Active Substance: DALTEPARIN SODIUM
     Indication: Thrombosis prophylaxis
     Dosage: 1 INJECTION AT 8.00 PM (1 IN 1 D)
     Dates: start: 20221013
  8. DICLOXACILLIN [Concomitant]
     Active Substance: DICLOXACILLIN
     Indication: Infection
     Dosage: 2 CAPSULES IN THE MORNING, 2 CAPSULES IN MIDDAY, 2 CAPSULES IN EVENING AND 2 CAPSULES AT NIGHT (4 IN
     Dates: start: 20230105, end: 20230215
  9. DICLOXACILLIN [Concomitant]
     Active Substance: DICLOXACILLIN
     Dosage: 2 CAPSULES IN THE MORNING, 2 CAPSULES IN MIDDAY (4 IN 1 D)
     Dates: start: 20230216, end: 20230216
  10. SULFAMETHOXAZOLE AND TRIMETHOPRIM [Concomitant]
     Active Substance: SULFAMETHOXAZOLE\TRIMETHOPRIM
     Indication: Infection
     Dosage: 1 TABLET IN THE MORNING (1 IN 1 D)
     Dates: start: 20220219
  11. ACYCLOVIR [Concomitant]
     Active Substance: ACYCLOVIR
     Indication: Herpes virus infection
     Dosage: ??1 TABLET IN THE MORNING AND 1 TABLET IN THE EVENING (2 IN 1 D)
     Dates: start: 20221013
  12. ACETAMINOPHEN [Concomitant]
     Active Substance: ACETAMINOPHEN
     Indication: Pain
     Dosage: 2 TABLETS
     Dates: start: 20221124

REACTIONS (1)
  - Dehydration [Recovered/Resolved]

NARRATIVE: CASE EVENT DATE: 20230208
